FAERS Safety Report 24923901 (Version 2)
Quarter: 2025Q1

REPORT INFORMATION
  Report Type: Report from Study
  Country: US (occurrence: US)
  Receive Date: 20250204
  Receipt Date: 20250207
  Transmission Date: 20250409
  Serious: No
  Sender: PFIZER
  Company Number: US-PFIZER INC-PV202500013017

PATIENT
  Age: 48 Year
  Sex: Male

DRUGS (2)
  1. BRAFTOVI [Suspect]
     Active Substance: ENCORAFENIB
     Dosage: TAKING 4 TABLETS OF 75 MG BRAFTOVI CAPSULE ONCE DAILY WITH MEKTOVI AT NIGHT
  2. MEKTOVI [Concomitant]
     Active Substance: BINIMETINIB
     Dosage: 2 TABLETS IN THE MORNING AND 2 TABLETS AT NIGHT

REACTIONS (4)
  - Chills [Recovering/Resolving]
  - Gastrointestinal pain [Recovering/Resolving]
  - Inflammation [Recovering/Resolving]
  - Decreased appetite [Recovering/Resolving]
